FAERS Safety Report 5116736-3 (Version None)
Quarter: 2006Q3

REPORT INFORMATION
  Report Type: 
  Country: None (occurrence: None)
  Receive Date: 20060928
  Receipt Date: 20060921
  Transmission Date: 20061208
  Serious: Yes (Hospitalization)
  Sender: FDA-Public Use
  Company Number: US-BRACCO-BDI-008663

PATIENT
  Sex: Female

DRUGS (1)
  1. ISOVUE-128 [Suspect]
     Route: 042
     Dates: start: 20060920, end: 20060920

REACTIONS (3)
  - COMPARTMENT SYNDROME [None]
  - DRUG ADMINISTERED AT INAPPROPRIATE SITE [None]
  - EXTRAVASATION [None]
